FAERS Safety Report 7062018-2 (Version None)
Quarter: 2010Q4

REPORT INFORMATION
  Report Type: 
  Country: None (occurrence: None)
  Receive Date: 20101026
  Receipt Date: 20101020
  Transmission Date: 20110411
  Serious: Yes (Hospitalization)
  Sender: FDA-Public Use
  Company Number: A0789890A

PATIENT
  Age: 42 Year
  Sex: Female

DRUGS (5)
  1. AVANDIA [Suspect]
     Indication: DIABETES MELLITUS
     Dosage: 4MG TWICE PER DAY
     Route: 048
     Dates: start: 19990601, end: 20031201
  2. INSULIN [Concomitant]
  3. LIPITOR [Concomitant]
  4. ELAVIL [Concomitant]
  5. ALTACE [Concomitant]

REACTIONS (14)
  - ACUTE MYOCARDIAL INFARCTION [None]
  - ANAEMIA MACROCYTIC [None]
  - CARDIAC FAILURE CONGESTIVE [None]
  - CORONARY ARTERY DISEASE [None]
  - CORONARY ARTERY OCCLUSION [None]
  - DIASTOLIC DYSFUNCTION [None]
  - HYPERTENSIVE HEART DISEASE [None]
  - IRON DEFICIENCY [None]
  - MITRAL VALVE INCOMPETENCE [None]
  - MYOCARDIAL INFARCTION [None]
  - MYOCARDIAL ISCHAEMIA [None]
  - OBESITY [None]
  - PRODUCT QUALITY ISSUE [None]
  - RENAL FAILURE [None]
